FAERS Safety Report 16829217 (Version 1)
Quarter: 2019Q3

REPORT INFORMATION
  Report Type: Spontaneous
  Country: US (occurrence: US)
  Receive Date: 20190919
  Receipt Date: 20190919
  Transmission Date: 20191005
  Serious: Yes (Death)
  Sender: FDA-Public Use
  Company Number: US-BAYER-2019-171060

PATIENT
  Age: 65 Year
  Sex: Male

DRUGS (5)
  1. ACETYLSALICYLIC ACID (CARDIO) [Suspect]
     Active Substance: ASPIRIN
     Indication: CARDIOVASCULAR EVENT PROPHYLAXIS
     Dosage: UNK
  2. MIDAZOLAM [Concomitant]
     Active Substance: MIDAZOLAM HYDROCHLORIDE
     Dosage: 2 MG
  3. FENTANYL. [Concomitant]
     Active Substance: FENTANYL
     Dosage: 10 UG/L
  4. HEPARIN [Suspect]
     Active Substance: HEPARIN SODIUM
  5. CLOPIDOGREL [Interacting]
     Active Substance: CLOPIDOGREL BISULFATE

REACTIONS (6)
  - Brain oedema [Fatal]
  - Haemorrhagic transformation stroke [Fatal]
  - Intentional product misuse [None]
  - Brain herniation [Fatal]
  - Labelled drug-drug interaction medication error [Fatal]
  - Product use in unapproved indication [None]
